FAERS Safety Report 8989010 (Version 1)
Quarter: 2012Q4

REPORT INFORMATION
  Report Type: Spontaneous
  Country: US (occurrence: None)
  Receive Date: 20121224
  Receipt Date: 20121224
  Transmission Date: 20130627
  Serious: Yes (Other)
  Sender: FDA-Public Use
  Company Number: None

PATIENT
  Age: 56 Year
  Sex: Male
  Weight: 128.8 kg

DRUGS (1)
  1. GALANTAMINE [Suspect]
     Dosage: 8 MG EVERY DAY PO
     Route: 048
     Dates: start: 20120322, end: 20120417

REACTIONS (1)
  - Treatment failure [None]
